FAERS Safety Report 9258231 (Version 5)
Quarter: 2014Q1

REPORT INFORMATION
  Report Type: Spontaneous
  Country: JP (occurrence: JP)
  Receive Date: 20130426
  Receipt Date: 20140214
  Transmission Date: 20141002
  Serious: Yes (Hospitalization, Other)
  Sender: FDA-Public Use
  Company Number: JP-VERTEX PHARMACEUTICALS INC.-2013-005427

PATIENT
  Age: 62 Year
  Sex: Female

DRUGS (13)
  1. TELAVIC [Suspect]
     Indication: CHRONIC HEPATITIS C
     Dosage: 1500 MG, QD
     Route: 048
     Dates: start: 20130219, end: 20130425
  2. RIBAVIRIN [Suspect]
     Indication: CHRONIC HEPATITIS C
     Dosage: 600 MG, QD
     Route: 048
     Dates: start: 20130219, end: 20130311
  3. RIBAVIRIN [Suspect]
     Dosage: 400 MG, QD
     Route: 048
     Dates: start: 20130312, end: 20130318
  4. RIBAVIRIN [Suspect]
     Dosage: 200 MG, QD
     Route: 048
     Dates: start: 20130319, end: 20130401
  5. RIBAVIRIN [Suspect]
     Dosage: 200 MG/2 DAYS
     Route: 048
     Dates: start: 20130402, end: 20130428
  6. PEGINTERFERON ALFA-2B [Suspect]
     Indication: CHRONIC HEPATITIS C
     Dosage: 1.5 ?G/KG, WEEKLY
     Route: 058
     Dates: start: 20130219, end: 20130424
  7. NU-LOTAN [Concomitant]
     Dosage: 50 MG, QD
     Route: 048
  8. SENNOSIDE [Concomitant]
     Dosage: 12 MG/QD, AS NEEDED
     Route: 048
  9. LENDORMIN D [Concomitant]
     Dosage: 0.25 MG/QD, AS NEEDED
     Route: 048
     Dates: start: 20130223
  10. NEXIUM [Concomitant]
     Dosage: 20 MG, QD
     Route: 048
     Dates: start: 20130402
  11. BFLUID [Concomitant]
     Dosage: 1000 ML, QD
     Route: 042
     Dates: start: 20130422, end: 20130430
  12. DENOSINE [Concomitant]
     Dosage: 500 MG, QD
     Route: 042
     Dates: start: 20130502, end: 20130507
  13. FUNGIZONE [Concomitant]
     Dosage: UNK
     Route: 049
     Dates: start: 20130503

REACTIONS (8)
  - Cytomegalovirus viraemia [Recovered/Resolved]
  - Erythema multiforme [Recovering/Resolving]
  - Hyperamylasaemia [Unknown]
  - Hepatic function abnormal [Not Recovered/Not Resolved]
  - Rash [Not Recovered/Not Resolved]
  - Hyperuricaemia [Recovered/Resolved]
  - Anaemia [Not Recovered/Not Resolved]
  - Drug eruption [Recovering/Resolving]
